FAERS Safety Report 7669791-0 (Version None)
Quarter: 2011Q3

REPORT INFORMATION
  Report Type: 
  Country: None (occurrence: None)
  Receive Date: 20110808
  Receipt Date: 20110728
  Transmission Date: 20111222
  Serious: Yes (Hospitalization, Other)
  Sender: FDA-Public Use
  Company Number: ES-ASTRAZENECA-2011SE45306

PATIENT
  Age: 56 Year
  Sex: Male

DRUGS (6)
  1. ATACAND [Suspect]
     Indication: CARDIAC FAILURE
     Route: 048
     Dates: start: 20061201, end: 20100821
  2. ALDACTONE [Interacting]
     Indication: CARDIAC FAILURE
     Route: 048
     Dates: end: 20100821
  3. HYDRALAZINE HCL [Interacting]
     Indication: CARDIAC FAILURE
     Route: 048
     Dates: start: 20090901, end: 20100821
  4. COROPRES [Concomitant]
     Indication: CARDIAC FAILURE
     Route: 048
     Dates: end: 20100821
  5. FUROSEMIDE [Interacting]
     Indication: CARDIAC FAILURE
     Route: 048
     Dates: end: 20100821
  6. IBUPROFEN [Interacting]
     Indication: PELVIC HAEMATOMA
     Route: 048
     Dates: start: 20100816, end: 20100821

REACTIONS (2)
  - RENAL FAILURE ACUTE [None]
  - DRUG INTERACTION [None]
